FAERS Safety Report 9068352 (Version 1)
Quarter: 2013Q1

REPORT INFORMATION
  Report Type: Spontaneous
  Country: US (occurrence: None)
  Receive Date: 20130212
  Receipt Date: 20130212
  Transmission Date: 20140127
  Serious: Yes (Other)
  Sender: FDA-Public Use
  Company Number: None

PATIENT
  Age: 83 Year
  Sex: Female
  Weight: 47.63 kg

DRUGS (2)
  1. CITALOPRAM [Suspect]
     Indication: DEPRESSION
     Dosage: 20 MG -1 TABLET-  1 X DAILY  PO
     Route: 048
     Dates: start: 20130117, end: 20130207
  2. DONEPEZIL [Suspect]
     Dosage: 5 MG -1 TABLET-  1 X DAILY  PO
     Route: 048
     Dates: start: 20130117, end: 20130207

REACTIONS (16)
  - Dizziness [None]
  - Somnolence [None]
  - Yawning [None]
  - Decreased appetite [None]
  - Emotional disorder [None]
  - Dysstasia [None]
  - Delusion [None]
  - Paranoia [None]
  - Depression [None]
  - Obsessive thoughts [None]
  - Thinking abnormal [None]
  - Diet refusal [None]
  - Weight decreased [None]
  - Dehydration [None]
  - Memory impairment [None]
  - Dissociative disorder [None]
